FAERS Safety Report 17582711 (Version 1)
Quarter: 2020Q1

REPORT INFORMATION
  Report Type: Spontaneous
  Country: US (occurrence: US)
  Receive Date: 20200325
  Receipt Date: 20200325
  Transmission Date: 20200409
  Serious: No
  Sender: FDA-Public Use
  Company Number: US-ASTRAZENECA-2019SF60036

PATIENT
  Sex: Male
  Weight: 111.1 kg

DRUGS (1)
  1. BYDUREON BCISE [Suspect]
     Active Substance: EXENATIDE
     Indication: TYPE 2 DIABETES MELLITUS
     Route: 058
     Dates: start: 2019

REACTIONS (3)
  - Vomiting [Recovering/Resolving]
  - Injection site mass [Recovering/Resolving]
  - Nausea [Recovering/Resolving]
